FAERS Safety Report 7644781-2 (Version None)
Quarter: 2011Q3

REPORT INFORMATION
  Report Type: 
  Country: None (occurrence: None)
  Receive Date: 20110729
  Receipt Date: 20091119
  Transmission Date: 20111222
  Serious: Yes (Death, Hospitalization, Other)
  Sender: FDA-Public Use
  Company Number: US-BAYER-200940018NA

PATIENT
  Age: 65 Year
  Sex: Female
  Weight: 70.4 kg

DRUGS (35)
  1. NORVASC [Concomitant]
     Dosage: 5 MG, QD
     Route: 048
     Dates: start: 20051220
  2. CORDARONE [Concomitant]
  3. METOPROLOL TARTRATE [Concomitant]
  4. LIDOCAINE [Concomitant]
  5. MORPHINE [Concomitant]
  6. MEPERIDINE HCL [Concomitant]
  7. TEMAZEPAM [Concomitant]
  8. LOPRESSOR [Concomitant]
     Dosage: UNK
     Route: 048
     Dates: start: 20051220
  9. LASIX [Concomitant]
  10. CONTRAST MEDIA [Concomitant]
     Indication: ARTERIOGRAM CORONARY
     Dosage: UNK
     Dates: start: 20051227
  11. TRASYLOL [Suspect]
     Dosage: 200 ML LOADING DOSE
     Route: 042
     Dates: start: 20051228, end: 20051228
  12. ANCEF [Concomitant]
  13. ALPRAZOLAM [Concomitant]
  14. VASOPRESSIN [Concomitant]
     Dosage: UNK
     Route: 042
     Dates: start: 20051228
  15. PROPOFOL [Concomitant]
     Dosage: UNK
     Route: 042
     Dates: start: 20051228
  16. PRIMACOR [Concomitant]
  17. TRASYLOL [Suspect]
     Dosage: 200 ML PUMP PRIME
     Route: 042
     Dates: start: 20051228, end: 20051228
  18. ATROPINE [Concomitant]
  19. PROPOXYPHENE HYDROCHLORIDE [Concomitant]
  20. METOCLOPRAMIDE [Concomitant]
  21. MILRINONE [Concomitant]
     Dosage: UNK
     Route: 042
     Dates: start: 20051228
  22. TRASYLOL [Suspect]
     Indication: CORONARY ARTERY BYPASS
     Dosage: 1 ML, TEST DOSE
     Route: 042
     Dates: start: 20051228, end: 20051228
  23. ACETAMINOPHEN [Concomitant]
  24. LEVOPHED [Concomitant]
     Dosage: UNK
     Route: 042
     Dates: start: 20051228
  25. EPINEPHRINE [Concomitant]
     Dosage: UNK
     Route: 042
     Dates: start: 20051228
  26. DIPRIVAN [Concomitant]
  27. CONTRAST MEDIA [Concomitant]
     Indication: CATHETERISATION CARDIAC
  28. ACETYLSALICYLIC ACID SRT [Concomitant]
     Dosage: 81 MG, QD
     Route: 048
     Dates: start: 20051220
  29. CARDENE [Concomitant]
  30. GLYCOPYRROLATE [Concomitant]
  31. TRASYLOL [Suspect]
     Dosage: 50 ML/HR INFUSION
     Route: 042
     Dates: start: 20051228, end: 20051228
  32. SYNTHROID [Concomitant]
     Dosage: 0.025
     Route: 048
  33. OXYCODONE HCL [Concomitant]
  34. MIDAZOLAM HCL [Concomitant]
  35. DOPAMINE HCL [Concomitant]
     Dosage: UNK
     Route: 042
     Dates: start: 20051228

REACTIONS (6)
  - RENAL FAILURE ACUTE [None]
  - PAIN [None]
  - UNEVALUABLE EVENT [None]
  - RENAL FAILURE [None]
  - DEATH [None]
  - INJURY [None]
